FAERS Safety Report 10006072 (Version 2)
Quarter: 2014Q2

REPORT INFORMATION
  Report Type: Spontaneous
  Country: US (occurrence: US)
  Receive Date: 20140313
  Receipt Date: 20140402
  Transmission Date: 20141212
  Serious: Yes (Life-Threatening, Hospitalization)
  Sender: FDA-Public Use
  Company Number: US-JNJFOC-20140306460

PATIENT
  Age: 86 Year
  Sex: Female
  Weight: 80.2 kg

DRUGS (11)
  1. XARELTO [Suspect]
     Indication: EMBOLISM
     Route: 048
     Dates: start: 20130621, end: 20130915
  2. XARELTO [Suspect]
     Indication: CEREBROVASCULAR ACCIDENT PROPHYLAXIS
     Route: 048
     Dates: start: 20130621, end: 20130915
  3. XARELTO [Suspect]
     Indication: ATRIAL FIBRILLATION
     Route: 048
     Dates: start: 20130621, end: 20130915
  4. LIPITOR [Concomitant]
     Route: 065
  5. SYNTHROID [Concomitant]
     Route: 065
  6. METOPROLOL [Concomitant]
     Route: 065
  7. LASIX [Concomitant]
     Route: 065
  8. COZAAR [Concomitant]
     Route: 065
  9. LUMIGAN [Concomitant]
     Route: 065
  10. PREDFORTE EYE DROPS [Concomitant]
     Route: 065
  11. ALPHAGAN [Concomitant]
     Route: 065

REACTIONS (2)
  - Haematoma [Unknown]
  - Dysphagia [Unknown]
